FAERS Safety Report 16402019 (Version 1)
Quarter: 2019Q2

REPORT INFORMATION
  Report Type: Spontaneous
  Country: US (occurrence: US)
  Receive Date: 20190607
  Receipt Date: 20190607
  Transmission Date: 20190711
  Serious: No
  Sender: FDA-Public Use
  Company Number: US-ASTRAZENECA-2019SE72934

PATIENT
  Age: 45 Year
  Sex: Female
  Weight: 59 kg

DRUGS (2)
  1. FARXIGA [Suspect]
     Active Substance: DAPAGLIFLOZIN PROPANEDIOL
     Dosage: 10.0MG UNKNOWN
     Route: 048
     Dates: start: 20190107, end: 20190502
  2. HUMULOG INSULIN [Concomitant]

REACTIONS (2)
  - Lichen sclerosus [Recovered/Resolved]
  - Glycosylated haemoglobin increased [Unknown]

NARRATIVE: CASE EVENT DATE: 201903
